FAERS Safety Report 7409341-7 (Version None)
Quarter: 2011Q1

REPORT INFORMATION
  Report Type: 
  Country: None (occurrence: None)
  Receive Date: 20110301
  Receipt Date: 20100920
  Transmission Date: 20110831
  Serious: Yes (Other)
  Sender: FDA-Public Use
  Company Number: RB-15603-2010

PATIENT
  Age: 41 Year
  Sex: Female

DRUGS (5)
  1. GUAIFENESIN [Suspect]
     Indication: NASOPHARYNGITIS
     Dosage: (ORAL)
     Route: 048
     Dates: start: 20100918, end: 20100920
  2. DEXTROMETHORPHAN (NONE) [Suspect]
     Indication: NASOPHARYNGITIS
     Dosage: (ORAL)
     Route: 048
     Dates: start: 20100918, end: 20100920
  3. ATIVAN [Concomitant]
  4. SUBOXONE [Suspect]
     Indication: DRUG DEPENDENCE
     Dosage: (8 MG 5X/DAY SUBLINGUAL), (8 MG TID SUBLINGUAL)
     Route: 060
     Dates: start: 20100201, end: 20100901
  5. SUBOXONE [Suspect]
     Indication: DRUG DEPENDENCE
     Dosage: (8 MG 5X/DAY SUBLINGUAL), (8 MG TID SUBLINGUAL)
     Route: 060
     Dates: start: 20100901

REACTIONS (4)
  - ABNORMAL DREAMS [None]
  - NASOPHARYNGITIS [None]
  - RHINORRHOEA [None]
  - CHEST DISCOMFORT [None]
